FAERS Safety Report 8025655-4 (Version None)
Quarter: 2012Q1

REPORT INFORMATION
  Report Type: 
  Country: None (occurrence: None)
  Receive Date: 20120105
  Receipt Date: 20111227
  Transmission Date: 20120608
  Serious: Yes (Other)
  Sender: FDA-Public Use
  Company Number: US-AMGEN-USASP2011069161

PATIENT
  Sex: Male
  Weight: 84 kg

DRUGS (10)
  1. LIPITOR [Concomitant]
  2. METOPROLOL [Concomitant]
  3. ASPIRIN [Concomitant]
  4. PLAVIX [Concomitant]
  5. COLACE [Concomitant]
  6. PROCRIT [Suspect]
     Indication: RENAL FAILURE CHRONIC
     Dosage: UNK UNK, QWK
     Route: 058
     Dates: start: 20100301, end: 20111227
  7. LISINOPRIL [Concomitant]
  8. KAYEXALATE [Concomitant]
  9. LASIX [Concomitant]
  10. FISH OIL [Concomitant]

REACTIONS (1)
  - APLASIA PURE RED CELL [None]
